FAERS Safety Report 8888699 (Version 2)
Quarter: 2012Q4

REPORT INFORMATION
  Report Type: 
  Country: JP (occurrence: JP)
  Receive Date: 20121106
  Receipt Date: 20121228
  Transmission Date: 20130627
  Serious: Yes (Life-Threatening, Hospitalization)
  Sender: FDA-Public Use
  Company Number: JP-GLAXOSMITHKLINE-B0811988A

PATIENT
  Age: 33 None
  Sex: Female

DRUGS (12)
  1. LAMICTAL [Suspect]
     Indication: BIPOLAR DISORDER
     Dosage: 25MG Per day
     Route: 048
     Dates: start: 20120528, end: 20120619
  2. TECIPUL [Concomitant]
     Indication: BIPOLAR DISORDER
     Dosage: 2MG Three times per day
     Route: 048
     Dates: end: 20120619
  3. HIRNAMIN [Concomitant]
     Indication: BIPOLAR DISORDER
     Dosage: 15MG Per day
     Route: 048
     Dates: end: 20120619
  4. LUDIOMIL [Concomitant]
     Indication: BIPOLAR DISORDER
     Dosage: 50MG Twice per day
     Route: 048
     Dates: end: 20120619
  5. SILECE [Concomitant]
     Indication: INSOMNIA
     Dosage: 2MG Per day
     Route: 048
     Dates: end: 20120619
  6. SEDIEL [Concomitant]
     Indication: BIPOLAR DISORDER
     Dosage: 10MG Twice per day
     Route: 048
     Dates: start: 20120216, end: 20120619
  7. MUCOSTA [Concomitant]
     Indication: GASTRITIS
     Dosage: 100MG Three times per day
     Route: 048
     Dates: end: 20120619
  8. MERISLON [Concomitant]
     Indication: DIZZINESS
     Dosage: 6MG Three times per day
     Route: 048
     Dates: start: 20120226, end: 20120619
  9. LULLAN [Concomitant]
     Indication: BIPOLAR DISORDER
     Route: 048
     Dates: end: 20120619
  10. MAGMITT [Concomitant]
     Indication: CONSTIPATION
     Dosage: 1500MG Per day
     Route: 048
     Dates: end: 20120619
  11. CETIRIZINE HYDROCHLORIDE [Concomitant]
     Indication: HYPERSENSITIVITY
     Dosage: 10MG Per day
     Route: 048
     Dates: end: 20120619
  12. JANUVIA [Concomitant]
     Indication: TYPE 2 DIABETES MELLITUS
     Dosage: 50MG Per day
     Route: 048
     Dates: start: 2009

REACTIONS (30)
  - Stevens-Johnson syndrome [Recovered/Resolved]
  - Oral mucosal blistering [Recovering/Resolving]
  - Rash [Recovering/Resolving]
  - Cheilitis [Recovering/Resolving]
  - Lip swelling [Unknown]
  - Rash papular [Unknown]
  - Erythema [Unknown]
  - Lip erosion [Unknown]
  - Lip ulceration [Unknown]
  - Oral mucosa erosion [Unknown]
  - Mouth ulceration [Unknown]
  - Vulvar erosion [Unknown]
  - Vulval ulceration [Unknown]
  - Vulval disorder [Unknown]
  - Eye discharge [Unknown]
  - Ocular hyperaemia [Unknown]
  - Conjunctival hyperaemia [Unknown]
  - Erythema of eyelid [Unknown]
  - Conjunctivitis [Unknown]
  - Rash [Unknown]
  - Pyrexia [Unknown]
  - Tonsillitis [Unknown]
  - White blood cell count increased [Unknown]
  - Neutrophil percentage increased [Unknown]
  - Basophil percentage increased [Unknown]
  - Monocyte percentage increased [Unknown]
  - Lymphocyte percentage decreased [Unknown]
  - Aspartate aminotransferase increased [Unknown]
  - Alanine aminotransferase increased [Unknown]
  - C-reactive protein increased [Unknown]
